FAERS Safety Report 8911677 (Version 1)
Quarter: 2012Q4

REPORT INFORMATION
  Report Type: Spontaneous
  Country: US (occurrence: None)
  Receive Date: 20121114
  Receipt Date: 20121114
  Transmission Date: 20130627
  Serious: Yes (Hospitalization)
  Sender: FDA-Public Use
  Company Number: None

PATIENT
  Age: 30 Year
  Sex: Female
  Weight: 101.7 kg

DRUGS (6)
  1. CARBOPLATIN [Suspect]
     Indication: ENDOMETRIAL CANCER
     Dosage: AUC 5 q21days
     Dates: start: 20120806, end: 20121105
  2. RIDAFOROLIMUS [Suspect]
     Indication: ENDOMETRIAL CANCER
     Dosage: 20mg po day 1-5 and 8-12
     Dates: start: 20120807, end: 20121110
  3. PACLITAXEL [Suspect]
     Indication: ENDOMETRIAL CANCER
     Dates: start: 20120806, end: 20121105
  4. FENTANYL PATCH [Concomitant]
  5. GABAPENTIN [Concomitant]
  6. OXYCODONE [Concomitant]

REACTIONS (6)
  - Nausea [None]
  - Vomiting [None]
  - Dehydration [None]
  - Hypokalaemia [None]
  - Anxiety [None]
  - Pain [None]
